FAERS Safety Report 12711210 (Version 2)
Quarter: 2016Q3

REPORT INFORMATION
  Report Type: Spontaneous
  Country: GB (occurrence: GB)
  Receive Date: 20160902
  Receipt Date: 20160922
  Transmission Date: 20161109
  Serious: Yes (Hospitalization)
  Sender: FDA-Public Use
  Company Number: GB-BIOVITRUM-2016GB0683

PATIENT
  Age: 48 Year
  Sex: Female

DRUGS (2)
  1. FERRIPROX [Concomitant]
     Active Substance: DEFERIPRONE
     Indication: THALASSAEMIA BETA
  2. ORFADIN [Suspect]
     Active Substance: NITISINONE
     Indication: ALKAPTONURIA

REACTIONS (1)
  - Neurological symptom [Unknown]
